FAERS Safety Report 16009018 (Version 2)
Quarter: 2019Q1

REPORT INFORMATION
  Report Type: Spontaneous
  Country: US (occurrence: US)
  Receive Date: 20190226
  Receipt Date: 20190319
  Transmission Date: 20190418
  Serious: Yes (Death, Other)
  Sender: FDA-Public Use
  Company Number: US-IMPAX LABORATORIES, LLC-2019-IPXL-00542

PATIENT
  Age: 53 Year
  Sex: Male
  Weight: 93 kg

DRUGS (4)
  1. SERTRALINE HCL [Suspect]
     Active Substance: SERTRALINE HYDROCHLORIDE
     Dosage: 25 MILLIGRAM, 2 /DAY
     Route: 065
     Dates: start: 201709, end: 201709
  2. SERTRALINE HCL [Suspect]
     Active Substance: SERTRALINE HYDROCHLORIDE
     Indication: DEPRESSION
     Dosage: 25 MILLIGRAM, 1 /DAY, FOR 7 DAYS
     Route: 065
     Dates: start: 20170830, end: 201709
  3. NAPROXEN. [Suspect]
     Active Substance: NAPROXEN
     Indication: TENDONITIS
     Dosage: UNK
     Route: 065
  4. PROPRANOLOL HYDROCHLORIDE IR [Suspect]
     Active Substance: PROPRANOLOL HYDROCHLORIDE
     Indication: HEART RATE DECREASED
     Dosage: 10 MILLIGRAM, 2 /DAY
     Route: 065

REACTIONS (16)
  - Insomnia [Not Recovered/Not Resolved]
  - Adverse event [Fatal]
  - Dyspnoea [Unknown]
  - Dyspepsia [Recovering/Resolving]
  - Tremor [Unknown]
  - Muscle twitching [Unknown]
  - Palpitations [Unknown]
  - Heart rate irregular [Unknown]
  - Coordination abnormal [Unknown]
  - Anxiety [Unknown]
  - Arthralgia [Unknown]
  - Body temperature increased [Unknown]
  - Chest pain [Recovering/Resolving]
  - Contusion [Unknown]
  - Libido decreased [Not Recovered/Not Resolved]
  - Nausea [Recovering/Resolving]

NARRATIVE: CASE EVENT DATE: 201708
